FAERS Safety Report 5475314-7 (Version None)
Quarter: 2007Q3

REPORT INFORMATION
  Report Type: 
  Country: None (occurrence: None)
  Receive Date: 20070928
  Receipt Date: 20070921
  Transmission Date: 20080115
  Serious: Yes (Other)
  Sender: FDA-Public Use
  Company Number: 2007RL000422

PATIENT

DRUGS (2)
  1. LOVAZA [Suspect]
     Indication: DRUG USE FOR UNKNOWN INDICATION
     Dosage: 1 GM; PO
     Route: 048
     Dates: start: 20070901
  2. AMICAR [Suspect]
     Indication: DRUG USE FOR UNKNOWN INDICATION
     Dosage: PO
     Route: 048
     Dates: start: 20070910, end: 20070913

REACTIONS (5)
  - ADVERSE DRUG REACTION [None]
  - DRUG DISPENSING ERROR [None]
  - HEADACHE [None]
  - MEDICATION ERROR [None]
  - WRONG DRUG ADMINISTERED [None]
